FAERS Safety Report 6219256-8 (Version None)
Quarter: 2009Q2

REPORT INFORMATION
  Report Type: 
  Country: None (occurrence: None)
  Receive Date: 20090605
  Receipt Date: 20090605
  Transmission Date: 20091009
  Serious: Yes (Hospitalization)
  Sender: FDA-Public Use
  Company Number: None

PATIENT
  Age: 60 Year
  Sex: Male

DRUGS (1)
  1. MEROPENEM 1 G [Suspect]
     Indication: ESCHERICHIA BACTERAEMIA
     Dosage: 1 G EVERY 8 HOURS IV
     Route: 042

REACTIONS (5)
  - DRY MOUTH [None]
  - DYSPHONIA [None]
  - PRURITUS [None]
  - STOMATITIS [None]
  - SWOLLEN TONGUE [None]
